FAERS Safety Report 7968654-0 (Version None)
Quarter: 2011Q4

REPORT INFORMATION
  Report Type: 
  Country: None (occurrence: None)
  Receive Date: 20111209
  Receipt Date: 20111201
  Transmission Date: 20120403
  Serious: Yes (Other)
  Sender: FDA-Public Use
  Company Number: US-VIIV HEALTHCARE LIMITED-A0957346A

PATIENT
  Age: 20 Year
  Sex: Female

DRUGS (2)
  1. COMBIVIR [Suspect]
     Indication: ANTIRETROVIRAL THERAPY
     Dosage: 2TAB PER DAY
     Route: 048
  2. KALETRA [Suspect]
     Indication: ANTIRETROVIRAL THERAPY
     Dosage: 4TAB PER DAY
     Route: 048

REACTIONS (2)
  - PREMATURE RUPTURE OF MEMBRANES [None]
  - MATERNAL EXPOSURE DURING PREGNANCY [None]
